FAERS Safety Report 19872720 (Version 1)
Quarter: 2021Q3

REPORT INFORMATION
  Report Type: Report from Study
  Country: CA (occurrence: CA)
  Receive Date: 20210923
  Receipt Date: 20210923
  Transmission Date: 20211014
  Serious: Yes (Hospitalization, Other)
  Sender: FDA-Public Use
  Company Number: CA-ORION CORPORATION ORION PHARMA-21_00015908

PATIENT
  Age: 72 Year
  Sex: Female
  Weight: 90 kg

DRUGS (13)
  1. ENTYVIO [Suspect]
     Active Substance: VEDOLIZUMAB
     Indication: CROHN^S DISEASE
     Route: 042
  2. TRANDOLAPRIL. [Concomitant]
     Active Substance: TRANDOLAPRIL
     Route: 065
  3. ACETYLSALICYLIC ACID [Concomitant]
     Active Substance: ASPIRIN
     Route: 065
  4. INSULIN [Concomitant]
     Active Substance: INSULIN NOS
     Route: 065
  5. METHOTREXATE (TRADE NAME UNKNOWN) [Suspect]
     Active Substance: METHOTREXATE
     Indication: PRODUCT USED FOR UNKNOWN INDICATION
     Route: 065
  6. CITALOPRAM HYDROBROMIDE. [Concomitant]
     Active Substance: CITALOPRAM HYDROBROMIDE
     Route: 065
  7. CALCIUM [Concomitant]
     Active Substance: CALCIUM
     Route: 065
  8. CLOPIDOGREL BISULFATE. [Concomitant]
     Active Substance: CLOPIDOGREL BISULFATE
     Route: 048
  9. METFORMIN [Concomitant]
     Active Substance: METFORMIN HYDROCHLORIDE
     Dosage: UNK
  10. APIXABAN [Concomitant]
     Active Substance: APIXABAN
     Route: 048
  11. ENTYVIO [Suspect]
     Active Substance: VEDOLIZUMAB
     Indication: COLITIS ULCERATIVE
     Route: 065
  12. ALLOPURINOL. [Concomitant]
     Active Substance: ALLOPURINOL
     Route: 065
  13. FOLIC ACID. [Concomitant]
     Active Substance: FOLIC ACID
     Route: 065

REACTIONS (4)
  - Myelosuppression [Recovered/Resolved]
  - Haemoglobin decreased [Recovered/Resolved]
  - Epistaxis [Recovered/Resolved]
  - Haemoptysis [Recovered/Resolved]
